FAERS Safety Report 11223464 (Version 1)
Quarter: 2015Q2

REPORT INFORMATION
  Report Type: Spontaneous
  Country: GB (occurrence: GB)
  Receive Date: 20150628
  Receipt Date: 20150628
  Transmission Date: 20150821
  Serious: Yes (Other)
  Sender: FDA-Public Use
  Company Number: GB-TEVA-572877ACC

PATIENT
  Age: 63 Year
  Sex: Male
  Weight: 73.02 kg

DRUGS (9)
  1. ASPIRIN. [Concomitant]
     Active Substance: ASPIRIN
  2. ATORVASTATIN [Suspect]
     Active Substance: ATORVASTATIN
     Indication: BLOOD CHOLESTEROL INCREASED
     Route: 048
  3. ATORVASTATIN [Suspect]
     Active Substance: ATORVASTATIN
     Indication: BLOOD CHOLESTEROL INCREASED
     Route: 048
     Dates: end: 20150515
  4. TICAGRELOR [Concomitant]
     Active Substance: TICAGRELOR
  5. AMLODIPINE [Concomitant]
     Active Substance: AMLODIPINE BESYLATE
  6. BISOPROLOL FUMARATE. [Concomitant]
     Active Substance: BISOPROLOL FUMARATE
  7. RAMIPRIL. [Concomitant]
     Active Substance: RAMIPRIL
  8. CETRABEN EMOLLIENT CREAM [Concomitant]
     Indication: ECZEMA
  9. ATORVASTATIN [Suspect]
     Active Substance: ATORVASTATIN
     Indication: BLOOD CHOLESTEROL INCREASED
     Route: 048
     Dates: start: 20131115

REACTIONS (8)
  - Erectile dysfunction [Recovered/Resolved]
  - Gynaecomastia [Recovered/Resolved]
  - Joint lock [Recovering/Resolving]
  - Arthralgia [Recovering/Resolving]
  - Myalgia [Recovering/Resolving]
  - Fatigue [Unknown]
  - Headache [Recovered/Resolved]
  - Abnormal weight gain [Recovering/Resolving]

NARRATIVE: CASE EVENT DATE: 20140101
